FAERS Safety Report 10204841 (Version 1)
Quarter: 2014Q2

REPORT INFORMATION
  Report Type: Spontaneous
  Country: US (occurrence: None)
  Receive Date: 20140527
  Receipt Date: 20140527
  Transmission Date: 20141212
  Serious: Yes (Life-Threatening)
  Sender: FDA-Public Use
  Company Number: None

PATIENT
  Age: 28 Year
  Sex: Female
  Weight: 72.58 kg

DRUGS (1)
  1. MINOCYCLINE 100 MG [Suspect]
     Indication: ACNE
     Route: 048
     Dates: start: 20140521, end: 20140522

REACTIONS (3)
  - Headache [None]
  - Dizziness [None]
  - CSF pressure abnormal [None]
